FAERS Safety Report 7516211-2 (Version None)
Quarter: 2011Q2

REPORT INFORMATION
  Report Type: 
  Country: None (occurrence: None)
  Receive Date: 20110520
  Receipt Date: 20110512
  Transmission Date: 20111010
  Serious: Yes (Death)
  Sender: FDA-Public Use
  Company Number: UTC-007127

PATIENT
  Age: 55 Year
  Sex: Female
  Weight: 90.09 kg

DRUGS (6)
  1. COUMADIN [Concomitant]
  2. LYRICA [Concomitant]
  3. REVATIO [Concomitant]
  4. TYVASO [Suspect]
     Indication: PULMONARY HYPERTENSION
     Dosage: 192 MCG (48 MCG, 4 IN 1 D), INHALATION
     Route: 055
     Dates: start: 20110215
  5. DIURETICS (DIURETICS) [Concomitant]
  6. PRENDISONE (PREDNISONE) [Concomitant]

REACTIONS (1)
  - DEATH [None]
